FAERS Safety Report 8880102 (Version 1)
Quarter: 2012Q4

REPORT INFORMATION
  Report Type: 
  Country: IT (occurrence: IT)
  Receive Date: 20121031
  Receipt Date: 20121031
  Transmission Date: 20130627
  Serious: Yes (Hospitalization)
  Sender: FDA-Public Use
  Company Number: IT-BAYER-2012-110373

PATIENT
  Age: 90 Year
  Sex: Female

DRUGS (5)
  1. CARDIOASPIRIN [Suspect]
     Indication: DEEP VENOUS THROMBOSIS PROPHYLAXIS
     Dosage: 100 mg, QD
     Route: 048
     Dates: start: 20120101
  2. ENTACT [Concomitant]
     Route: 048
  3. XANAX [Concomitant]
     Route: 048
  4. FOLINA [Concomitant]
     Route: 048
  5. CALCIUM CARBONATE [Concomitant]
     Route: 048

REACTIONS (3)
  - Sopor [Unknown]
  - Confusional state [Unknown]
  - Cerebral haemorrhage [Unknown]
